FAERS Safety Report 12715393 (Version 2)
Quarter: 2016Q3

REPORT INFORMATION
  Report Type: Report from Study
  Country: BR (occurrence: BR)
  Receive Date: 20160906
  Receipt Date: 20160914
  Transmission Date: 20161109
  Serious: Yes (Death, Hospitalization)
  Sender: FDA-Public Use
  Company Number: BR-ORION CORPORATION ORION PHARMA-ENTC2016-0500

PATIENT
  Age: 81 Year
  Sex: Male
  Weight: 70 kg

DRUGS (5)
  1. PROLOPA [Concomitant]
     Active Substance: BENSERAZIDE\LEVODOPA
     Dosage: STRENGTH: 200/50 MG
     Route: 065
  2. EXELON [Suspect]
     Active Substance: RIVASTIGMINE TARTRATE
     Indication: MEMORY IMPAIRMENT
     Dosage: PATCH 10 CM2
     Route: 062
  3. STALEVO [Suspect]
     Active Substance: CARBIDOPA\ENTACAPONE\LEVODOPA
     Dosage: STRENGTH: 100/25/200MG
     Route: 048
  4. PROLOPA HBS [Concomitant]
     Active Substance: BENSERAZIDE\LEVODOPA
     Dosage: STRENGTH: 100/25 MG
     Route: 065
  5. MANTIDAN [Concomitant]
     Active Substance: AMANTADINE HYDROCHLORIDE
     Indication: MEMORY IMPAIRMENT
     Route: 065

REACTIONS (3)
  - Parkinson^s disease [Not Recovered/Not Resolved]
  - Renal failure [Not Recovered/Not Resolved]
  - Death [Fatal]

NARRATIVE: CASE EVENT DATE: 20160702
